FAERS Safety Report 7831272-9 (Version None)
Quarter: 2011Q4

REPORT INFORMATION
  Report Type: 
  Country: None (occurrence: None)
  Receive Date: 20111021
  Receipt Date: 20111018
  Transmission Date: 20120403
  Serious: No
  Sender: FDA-Public Use
  Company Number: US-TEVA-305836USA

PATIENT
  Sex: Female
  Weight: 59.02 kg

DRUGS (2)
  1. PLAN B ONE-STEP [Suspect]
     Indication: POST COITAL CONTRACEPTION
     Dosage: 1.5 MILLIGRAM;
     Route: 048
     Dates: start: 20110919, end: 20110919
  2. PLAN B ONE-STEP [Suspect]
     Dosage: 1.5 MILLIGRAM;
     Route: 048
     Dates: start: 20111017, end: 20111017

REACTIONS (5)
  - DIZZINESS [None]
  - ASTHENIA [None]
  - MENORRHAGIA [None]
  - VULVOVAGINAL BURNING SENSATION [None]
  - MENSTRUATION IRREGULAR [None]
